FAERS Safety Report 4684266-9 (Version None)
Quarter: 2005Q2

REPORT INFORMATION
  Report Type: 
  Country: None (occurrence: None)
  Receive Date: 20050531
  Receipt Date: 20050223
  Transmission Date: 20051028
  Serious: Yes (Hospitalization)
  Sender: FDA-Public Use
  Company Number: 200511496US

PATIENT
  Age: 82 Year
  Sex: Male

DRUGS (2)
  1. LOVENOX [Suspect]
     Dosage: 30 MG BID
  2. ACETYLSALICYLIC ACID (ASPIRIN) ACETYLSALICYCLIC ACID (ASPIRIN) [Concomitant]

REACTIONS (4)
  - HAEMATOCRIT DECREASED [None]
  - HAEMOGLOBIN DECREASED [None]
  - OPERATIVE HAEMORRHAGE [None]
  - SWELLING [None]
